FAERS Safety Report 10441504 (Version 2)
Quarter: 2014Q3

REPORT INFORMATION
  Report Type: Spontaneous
  Country: US (occurrence: US)
  Receive Date: 20140908
  Receipt Date: 20140908
  Transmission Date: 20150326
  Serious: Yes (Other)
  Sender: FDA-Public Use
  Company Number: US-BANPHARM-20143010

PATIENT
  Age: 79 Year
  Sex: Male
  Weight: 94.33 kg

DRUGS (3)
  1. NAPROXEN SODIUM 220 MG [Suspect]
     Active Substance: NAPROXEN SODIUM
     Indication: PAIN
     Dosage: 220 MG, BID,
     Route: 048
     Dates: start: 20140819, end: 20140821
  2. LIPID MODIFYING AGENTS [Concomitant]
  3. ANTIHYPERTENSIVES [Concomitant]
     Active Substance: UNSPECIFIED INGREDIENT

REACTIONS (5)
  - Lip swelling [Recovered/Resolved]
  - Swelling face [Recovered/Resolved]
  - Oral mucosal erythema [Recovered/Resolved]
  - Oedema mucosal [Recovered/Resolved]
  - Hypoaesthesia oral [Recovered/Resolved]

NARRATIVE: CASE EVENT DATE: 20140821
